FAERS Safety Report 21410514 (Version 3)
Quarter: 2023Q2

REPORT INFORMATION
  Report Type: Spontaneous
  Country: AU (occurrence: AU)
  Receive Date: 20221005
  Receipt Date: 20230525
  Transmission Date: 20230721
  Serious: Yes (Other)
  Sender: FDA-Public Use
  Company Number: AU-ABBVIE-4134376

PATIENT
  Age: 16 Year
  Sex: Female

DRUGS (1)
  1. ADALIMUMAB [Suspect]
     Active Substance: ADALIMUMAB
     Indication: Toxic epidermal necrolysis
     Route: 058

REACTIONS (6)
  - Hepatitis cholestatic [Recovered/Resolved]
  - Conjunctivitis [Recovered/Resolved]
  - Genital erosion [Recovered/Resolved]
  - Drug effective for unapproved indication [Unknown]
  - Off label use [Unknown]
  - Stomatitis [Recovered/Resolved]
